FAERS Safety Report 16826903 (Version 1)
Quarter: 2019Q3

REPORT INFORMATION
  Report Type: Spontaneous
  Country: US (occurrence: US)
  Receive Date: 20190729
  Receipt Date: 20190729
  Transmission Date: 20191005
  Serious: Yes (Other)
  Sender: FDA-Public Use
  Company Number: None

PATIENT
  Age: 37 Year
  Sex: Male
  Weight: 104.33 kg

DRUGS (2)
  1. TESTOSTERONE  CYPONASE [Concomitant]
  2. TESTOSTERONE. [Suspect]
     Active Substance: TESTOSTERONE
     Route: 061
     Dates: start: 201902

REACTIONS (2)
  - Drug ineffective [None]
  - Therapeutic response changed [None]

NARRATIVE: CASE EVENT DATE: 20190709
